FAERS Safety Report 9502911 (Version 1)
Quarter: 2013Q3

REPORT INFORMATION
  Report Type: Report from Study
  Country: AR (occurrence: AR)
  Receive Date: 20130906
  Receipt Date: 20130906
  Transmission Date: 20140515
  Serious: Yes (Other)
  Sender: FDA-Public Use
  Company Number: PHHY2013AR097418

PATIENT
  Sex: Female

DRUGS (1)
  1. DIOVAN D [Suspect]
     Indication: HYPERTENSION
     Dosage: 1 TABLET (160/12.5 MG), DAILY
     Route: 048

REACTIONS (3)
  - Maculopathy [Not Recovered/Not Resolved]
  - Visual impairment [Not Recovered/Not Resolved]
  - Visual acuity reduced [Not Recovered/Not Resolved]
